FAERS Safety Report 6906916-6 (Version None)
Quarter: 2010Q3

REPORT INFORMATION
  Report Type: 
  Country: None (occurrence: None)
  Receive Date: 20100804
  Receipt Date: 20100728
  Transmission Date: 20110219
  Serious: Yes (Hospitalization, Other)
  Sender: FDA-Public Use
  Company Number: US-ELI_LILLY_AND_COMPANY-US201007007201

PATIENT
  Age: 75 Year
  Sex: Female

DRUGS (1)
  1. HUMALOG MIX 75/25 [Suspect]
     Indication: DIABETES MELLITUS
     Dosage: 30 U, UNKNOWN

REACTIONS (5)
  - ABDOMINAL PAIN UPPER [None]
  - HIP SURGERY [None]
  - INTESTINAL FUNCTIONAL DISORDER [None]
  - OESOPHAGEAL CARCINOMA [None]
  - OESOPHAGEAL ULCER [None]
